FAERS Safety Report 12143708 (Version 2)
Quarter: 2016Q2

REPORT INFORMATION
  Report Type: Spontaneous
  Country: US (occurrence: US)
  Receive Date: 20160304
  Receipt Date: 20160413
  Transmission Date: 20160815
  Serious: No
  Sender: FDA-Public Use
  Company Number: US-JNJFOC-20160215538

PATIENT
  Age: 50 Year
  Sex: Female
  Weight: 72.58 kg

DRUGS (4)
  1. WOMENS ROGAINE UNSCENTED [Suspect]
     Active Substance: MINOXIDIL
     Route: 061
  2. WOMENS ROGAINE UNSCENTED [Suspect]
     Active Substance: MINOXIDIL
     Indication: ALOPECIA
     Dosage: 1/2 CAPFUL
     Route: 061
  3. PROGAINE VOLUMIZING SHAMPOO [Concomitant]
     Indication: ALOPECIA
     Route: 065
  4. MEDICATED SHAMPOOS [Concomitant]
     Indication: ALOPECIA
     Route: 065

REACTIONS (3)
  - Skin irritation [Recovered/Resolved]
  - Paraesthesia [Recovered/Resolved]
  - Skin burning sensation [Recovered/Resolved]
